FAERS Safety Report 4323199-4 (Version None)
Quarter: 2004Q1

REPORT INFORMATION
  Report Type: 
  Country: None (occurrence: None)
  Receive Date: 20040322
  Receipt Date: 20040311
  Transmission Date: 20041129
  Serious: Yes (Other)
  Sender: FDA-Public Use
  Company Number: HQWYE901224DEC03

PATIENT
  Age: 34 Year
  Sex: Female
  Weight: 77.18 kg

DRUGS (6)
  1. EFFEXOR XR [Suspect]
     Indication: ANXIETY
     Dosage: 75 MG 1X PER 1 DAY, ORAL TAPERED AND DISCONTINUED BY TAKING AN UNSPECIFIED DOSE EVERY OTHER DAY, ORA
     Route: 048
     Dates: start: 20020101, end: 20031226
  2. EFFEXOR XR [Suspect]
     Indication: DEPRESSION
     Dosage: 75 MG 1X PER 1 DAY, ORAL TAPERED AND DISCONTINUED BY TAKING AN UNSPECIFIED DOSE EVERY OTHER DAY, ORA
     Route: 048
     Dates: start: 20020101, end: 20031226
  3. EFFEXOR XR [Suspect]
     Indication: ANXIETY
     Dosage: 75 MG 1X PER 1 DAY, ORAL TAPERED AND DISCONTINUED BY TAKING AN UNSPECIFIED DOSE EVERY OTHER DAY, ORA
     Route: 048
     Dates: start: 20031227, end: 20040102
  4. EFFEXOR XR [Suspect]
     Indication: DEPRESSION
     Dosage: 75 MG 1X PER 1 DAY, ORAL TAPERED AND DISCONTINUED BY TAKING AN UNSPECIFIED DOSE EVERY OTHER DAY, ORA
     Route: 048
     Dates: start: 20031227, end: 20040102
  5. LIPOFLAVONOID (ASCORBIC ACID/BIOFLAVONOIDS/CHOLINE BITARTRATE/DL-METHI [Concomitant]
  6. TRIAMTERENE AND HYDROCHLOROTHIAZIDE [Concomitant]

REACTIONS (11)
  - ABDOMINAL PAIN UPPER [None]
  - DIARRHOEA [None]
  - DIZZINESS [None]
  - DRUG WITHDRAWAL SYNDROME [None]
  - HEADACHE [None]
  - NAUSEA [None]
  - OPTIC NERVE DISORDER [None]
  - RETINAL EXUDATES [None]
  - VISUAL DISTURBANCE [None]
  - VISUAL FIELD DEFECT [None]
  - VOMITING [None]
